FAERS Safety Report 6196743-2 (Version None)
Quarter: 2009Q2

REPORT INFORMATION
  Report Type: 
  Country: None (occurrence: None)
  Receive Date: 20090520
  Receipt Date: 20090515
  Transmission Date: 20091009
  Serious: No
  Sender: FDA-Public Use
  Company Number: US-MERCK-0905USA00975

PATIENT
  Sex: Female

DRUGS (3)
  1. SINGULAIR [Suspect]
     Indication: HYPERSENSITIVITY
     Route: 048
     Dates: start: 20090101
  2. ALBUTEROL [Concomitant]
     Route: 065
  3. ADVAIR HFA [Concomitant]
     Indication: ALLERGY TO ANIMAL
     Route: 065

REACTIONS (1)
  - LARYNGITIS [None]
